FAERS Safety Report 18657907 (Version 1)
Quarter: 2020Q4

REPORT INFORMATION
  Report Type: Spontaneous
  Country: DK (occurrence: DK)
  Receive Date: 20201224
  Receipt Date: 20201224
  Transmission Date: 20210114
  Serious: Yes (Other)
  Sender: FDA-Public Use
  Company Number: DK-TEVA-2020-DK-1860116

PATIENT
  Age: 42 Year
  Sex: Male

DRUGS (3)
  1. GABAPENTIN. [Concomitant]
     Active Substance: GABAPENTIN
     Indication: NEURALGIA
     Dosage: UNIT DOSE :  900 MG
     Route: 048
     Dates: start: 20190424
  2. IBUPROFEN ^TEVA^ [Suspect]
     Active Substance: IBUPROFEN
     Indication: BACK PAIN
     Dosage: UNIT DOSE :  1600 MG
     Route: 048
     Dates: start: 20191001, end: 20191006
  3. PANODIL [Concomitant]
     Active Substance: ACETAMINOPHEN
     Indication: BACK PAIN
     Dosage: STRENGTH AND DOSAGE: UNKNOWN
     Dates: start: 20191001

REACTIONS (2)
  - Diplopia [Recovered/Resolved]
  - Cataract [Unknown]

NARRATIVE: CASE EVENT DATE: 20191005
